FAERS Safety Report 8327535-3 (Version None)
Quarter: 2012Q2

REPORT INFORMATION
  Report Type: 
  Country: None (occurrence: None)
  Receive Date: 20120502
  Receipt Date: 20120425
  Transmission Date: 20120825
  Serious: No
  Sender: FDA-Public Use
  Company Number: US-BAYER-2012-041616

PATIENT
  Age: 43 Year
  Sex: Female

DRUGS (1)
  1. EOVIST [Suspect]
     Indication: LIVER SCAN
     Dosage: UNK
     Route: 042
     Dates: start: 20120425, end: 20120425

REACTIONS (3)
  - VOMITING [None]
  - ABDOMINAL DISCOMFORT [None]
  - NAUSEA [None]
